FAERS Safety Report 13509790 (Version 1)
Quarter: 2017Q2

REPORT INFORMATION
  Report Type: Spontaneous
  Country: US (occurrence: US)
  Receive Date: 20170503
  Receipt Date: 20170503
  Transmission Date: 20170830
  Serious: No
  Sender: FDA-Public Use
  Company Number: US-SA-2017SA043201

PATIENT
  Age: 39 Year
  Sex: Female

DRUGS (22)
  1. CLONAZEPAM. [Concomitant]
     Active Substance: CLONAZEPAM
     Dosage: STRENGTH: 1MG
  2. OMEPRAZOLE. [Concomitant]
     Active Substance: OMEPRAZOLE
     Dosage: STRENGTH: 20MG
  3. PRALUENT [Suspect]
     Active Substance: ALIROCUMAB
     Indication: HYPERLIPIDAEMIA
     Route: 065
     Dates: start: 20160222
  4. ALIROCUMAB PREFILLED PEN [Concomitant]
     Active Substance: ALIROCUMAB
     Indication: HYPERLIPIDAEMIA
     Dates: start: 20160222
  5. ARIPIPRAZOLE. [Concomitant]
     Active Substance: ARIPIPRAZOLE
     Dosage: STRENGTH: 30MG
  6. ESZOPICLONE. [Concomitant]
     Active Substance: ESZOPICLONE
     Dosage: STRENGTH: 3MG
  7. FUROSEMIDE. [Concomitant]
     Active Substance: FUROSEMIDE
     Dosage: STRENGTH: 40MG
  8. TOPIRAMATE. [Concomitant]
     Active Substance: TOPIRAMATE
     Dosage: STRENGTH: 50MG
  9. TRAMADOL HYDROCHLORIDE. [Concomitant]
     Active Substance: TRAMADOL HYDROCHLORIDE
     Dosage: STRENGTH: 50MG
  10. LIDOCAINE. [Concomitant]
     Active Substance: LIDOCAINE
  11. LISINOPRIL. [Concomitant]
     Active Substance: LISINOPRIL
     Dosage: STRENGTH: 10MG
  12. MEDROXYPR [Concomitant]
     Dosage: 150MG/ML
  13. BUTALBITAL AND ACETAMINOPHEN [Concomitant]
     Active Substance: ACETAMINOPHEN\BUTALBITAL
     Dosage: STRENGTH: 50/325MG
  14. DULOXETINE. [Concomitant]
     Active Substance: DULOXETINE
     Dosage: STRENGTH: 60MG
  15. BUSPIRONE [Concomitant]
     Active Substance: BUSPIRONE HYDROCHLORIDE
     Dosage: STRENGTH: 10MG
  16. RANITIDINE. [Concomitant]
     Active Substance: RANITIDINE
     Dosage: STRENGTH: 150MG
  17. METOPROLOL. [Concomitant]
     Active Substance: METOPROLOL
     Dosage: STRENGTH: 25MG
  18. MONTELUKAST [Concomitant]
     Active Substance: MONTELUKAST SODIUM
     Dosage: STRENGTH: 10MG
  19. NORETHIN [Concomitant]
     Dosage: STRENGTH: 5MG
  20. PROAIR HFA [Concomitant]
     Active Substance: ALBUTEROL SULFATE
  21. CYCLOBENZAPRINE. [Concomitant]
     Active Substance: CYCLOBENZAPRINE
     Dosage: STRENGTH: 10MG
  22. HUMULIN R [Concomitant]
     Active Substance: INSULIN HUMAN
     Dosage: U 500

REACTIONS (1)
  - Liver disorder [Recovered/Resolved]
